FAERS Safety Report 6410829-6 (Version None)
Quarter: 2009Q4

REPORT INFORMATION
  Report Type: 
  Country: None (occurrence: None)
  Receive Date: 20091020
  Receipt Date: 20091020
  Transmission Date: 20100525
  Serious: No
  Sender: FDA-Public Use
  Company Number: None

PATIENT
  Sex: Male
  Weight: 111.4 kg

DRUGS (1)
  1. CLONIDINE [Suspect]
     Indication: HYPERTENSION
     Dosage: 0.3 MG WEEKLY TRANSDERMAL
     Route: 062
     Dates: start: 20090901, end: 20091001

REACTIONS (1)
  - PRODUCT ADHESION ISSUE [None]
